FAERS Safety Report 6474865-6 (Version None)
Quarter: 2009Q4

REPORT INFORMATION
  Report Type: 
  Country: None (occurrence: None)
  Receive Date: 20091204
  Receipt Date: 20090421
  Transmission Date: 20100525
  Serious: Yes (Hospitalization)
  Sender: FDA-Public Use
  Company Number: US-ELI_LILLY_AND_COMPANY-US200902003804

PATIENT
  Sex: Female

DRUGS (13)
  1. FORTEO [Suspect]
     Indication: OSTEOPOROSIS
     Dates: start: 20090101
  2. FORTEO [Suspect]
  3. PROZAC [Concomitant]
  4. PLENDIL [Concomitant]
  5. ZOCOR [Concomitant]
  6. CENTRUM SILVER [Concomitant]
  7. CITRUCEL [Concomitant]
  8. CALTRATE [Concomitant]
  9. XANAX [Concomitant]
  10. FLEXERIL [Concomitant]
  11. ASPIRIN                                 /SCH/ [Concomitant]
     Dosage: UNK, DAILY (1/D)
  12. GLUCOSAMINE SULFATE [Concomitant]
  13. HYDROCODONE [Concomitant]

REACTIONS (5)
  - CHEST PAIN [None]
  - DEMENTIA [None]
  - MALAISE [None]
  - RASH [None]
  - SPINAL COMPRESSION FRACTURE [None]
